FAERS Safety Report 16977257 (Version 1)
Quarter: 2019Q4

REPORT INFORMATION
  Report Type: Spontaneous
  Country: FR (occurrence: FR)
  Receive Date: 20191031
  Receipt Date: 20191031
  Transmission Date: 20200122
  Serious: Yes (Death, Other)
  Sender: FDA-Public Use
  Company Number: FR-TEVA-2019-FR-1129716

PATIENT
  Age: 68 Year
  Sex: Male

DRUGS (6)
  1. GRAFALON [Suspect]
     Active Substance: LAPINE T-LYMPHOCYTE IMMUNE GLOBULIN
     Indication: BONE MARROW CONDITIONING REGIMEN
     Dosage: 900 MG
     Route: 042
     Dates: start: 20190706, end: 20190708
  2. CHOLURSO 250 MG, COMPRIME PELLICULE [Concomitant]
     Indication: PROPHYLAXIS
     Dosage: 3 DF
     Route: 048
     Dates: start: 20190709
  3. GELOX, SUSPENSION BUVABLE EN SACHET [Concomitant]
     Indication: ABDOMINAL PAIN UPPER
     Dosage: 3 DF
     Route: 048
     Dates: start: 20190709, end: 20190714
  4. BUSULFAN FRESENIUS KABI 6 MG/ML, SOLUTION A DILUER POUR PERFUSION [Suspect]
     Active Substance: BUSULFAN
     Indication: BONE MARROW CONDITIONING REGIMEN
     Dosage: 285 MG
     Route: 042
     Dates: start: 20190706, end: 20190707
  5. MYFORTIC [Concomitant]
     Active Substance: MYCOPHENOLATE SODIUM
     Indication: PROPHYLAXIS AGAINST GRAFT VERSUS HOST DISEASE
     Dosage: 2 DF
     Route: 048
     Dates: start: 20190709, end: 20190812
  6. FLUDARABINE (PHOSPHATE DE) [Suspect]
     Active Substance: FLUDARABINE PHOSPHATE
     Indication: BONE MARROW CONDITIONING REGIMEN
     Dosage: 61 MG
     Route: 042
     Dates: start: 20190704, end: 20190707

REACTIONS (2)
  - Jaundice [Recovering/Resolving]
  - Hyperbilirubinaemia [Recovering/Resolving]

NARRATIVE: CASE EVENT DATE: 20190710
